FAERS Safety Report 15557128 (Version 1)
Quarter: 2018Q4

REPORT INFORMATION
  Report Type: Spontaneous
  Country: KR (occurrence: KR)
  Receive Date: 20181026
  Receipt Date: 20181026
  Transmission Date: 20190205
  Serious: Yes (Other)
  Sender: FDA-Public Use
  Company Number: KR-REGENERON PHARMACEUTICALS, INC.-2018-42469

PATIENT

DRUGS (1)
  1. EYLEA [Suspect]
     Active Substance: AFLIBERCEPT
     Indication: MACULAR DEGENERATION
     Dosage: 2 MG, UNK, LEFT EYE, TOTAL OF 4 INJECTIONS
     Route: 031

REACTIONS (8)
  - Retinal pigment epithelial tear [Unknown]
  - Retinal disorder [Unknown]
  - Subretinal fluid [Unknown]
  - Maculopathy [Unknown]
  - Macular fibrosis [Unknown]
  - Retinal cyst [Unknown]
  - Visual acuity reduced [Unknown]
  - Blindness [Unknown]
